FAERS Safety Report 7251437-7 (Version None)
Quarter: 2011Q1

REPORT INFORMATION
  Report Type: 
  Country: None (occurrence: None)
  Receive Date: 20110128
  Receipt Date: 20110125
  Transmission Date: 20110831
  Serious: Yes (Hospitalization)
  Sender: FDA-Public Use
  Company Number: NL-PFIZER INC-2011018180

PATIENT
  Age: 33 Year
  Sex: Female
  Weight: 43 kg

DRUGS (6)
  1. MORPHINE SULFATE [Concomitant]
     Dosage: 10 MG, 4X/DAY
  2. STEDIRIL [Concomitant]
     Dosage: 1 UNK, 1X/DAY
  3. ARTHROTEC [Suspect]
     Indication: JUVENILE ARTHRITIS
     Dosage: 75 MG, 2X/DAY
     Route: 048
     Dates: start: 20070101, end: 20110106
  4. ARAVA [Suspect]
     Indication: JUVENILE ARTHRITIS
     Dosage: 20 MG, 1X/DAY
     Dates: start: 20101005, end: 20101226
  5. NEXIUM [Suspect]
     Indication: GASTROOESOPHAGEAL REFLUX DISEASE
     Dosage: 1 UNK, 2X/DAY
     Dates: start: 20100728, end: 20110106
  6. CALCICHEW [Concomitant]
     Dosage: 1 UNK, 1X/DAY
     Dates: start: 20060101

REACTIONS (2)
  - PANCREATITIS ACUTE [None]
  - POLYNEUROPATHY [None]
